FAERS Safety Report 8567250-4 (Version None)
Quarter: 2012Q3

REPORT INFORMATION
  Report Type: 
  Country: None (occurrence: None)
  Receive Date: 20120803
  Receipt Date: 20111118
  Transmission Date: 20120928
  Serious: No
  Sender: FDA-Public Use
  Company Number: US-ABBOTT-11P-163-0875617-00

PATIENT
  Sex: Male
  Weight: 74.91 kg

DRUGS (7)
  1. TRIAMADRINE [Concomitant]
     Indication: FLUID RETENTION
  2. NIASPAN [Suspect]
     Indication: BLOOD CHOLESTEROL INCREASED
     Dates: start: 20100901
  3. LISINOPRIL [Concomitant]
     Indication: HYPERTENSION
  4. IBUPROFEN TABLETS [Suspect]
     Indication: PRODUCT USED FOR UNKNOWN INDICATION
     Dosage: 60 MINUTES BEFORE TAKING NIASPAN
     Route: 048
     Dates: start: 20100901, end: 20110801
  5. VITAMIN TAB [Concomitant]
     Indication: ROUTINE HEALTH MAINTENANCE
  6. FISH OIL [Concomitant]
     Indication: ROUTINE HEALTH MAINTENANCE
  7. SIMVASTATIN [Concomitant]
     Indication: BLOOD CHOLESTEROL INCREASED

REACTIONS (5)
  - ERYTHEMA [None]
  - PRURITUS [None]
  - OROPHARYNGEAL PAIN [None]
  - GASTROOESOPHAGEAL REFLUX DISEASE [None]
  - FLUSHING [None]
